FAERS Safety Report 8455298-X (Version None)
Quarter: 2012Q2

REPORT INFORMATION
  Report Type: 
  Country: None (occurrence: None)
  Receive Date: 20120614
  Receipt Date: 20120530
  Transmission Date: 20120825
  Serious: Yes (Other)
  Sender: FDA-Public Use
  Company Number: GB-1192543

PATIENT
  Age: 76 Year
  Sex: Female

DRUGS (9)
  1. DIAMOX [Concomitant]
  2. TIMOLOL MALEATE [Concomitant]
  3. BIMATOPROST AND TIMOLOL MALEATE [Concomitant]
  4. MAXIDEX [Suspect]
     Dosage: (QDS OPHTHALMIC)
     Route: 047
  5. IOPIDINE [Suspect]
     Dosage: (TDS OPHTHALMIC)
     Route: 047
  6. PREDNISOLONE SODIUM PHOSPHATE [Concomitant]
  7. LOTEMAX [Concomitant]
  8. ALPHAGAN [Concomitant]
  9. CHLORAMPHENICOL [Suspect]
     Dosage: (QDS)

REACTIONS (6)
  - CORNEAL THICKENING [None]
  - INTRAOCULAR PRESSURE INCREASED [None]
  - TRANSPLANT REJECTION [None]
  - TRANSPLANT FAILURE [None]
  - CORNEAL OEDEMA [None]
  - CORNEAL DECOMPENSATION [None]
